FAERS Safety Report 9485830 (Version 1)
Quarter: 2013Q3

REPORT INFORMATION
  Report Type: Spontaneous
  Country: GB (occurrence: GB)
  Receive Date: 20130829
  Receipt Date: 20130829
  Transmission Date: 20140515
  Serious: Yes (Disabling)
  Sender: FDA-Public Use
  Company Number: PHHY2013GB093084

PATIENT
  Age: 81 Year
  Sex: Female
  Weight: 75 kg

DRUGS (11)
  1. STALEVO [Suspect]
     Dosage: UNK UKN, UNK
     Dates: start: 20130720
  2. ANGITIL SR [Concomitant]
     Dosage: UNK UKN, UNK
     Dates: start: 20130522, end: 20130822
  3. ASPIRIN [Concomitant]
     Dosage: UNK UKN, UNK
     Dates: start: 20130522, end: 20130812
  4. BENDROFLUMETHIAZIDE [Concomitant]
     Dosage: UNK UKN, UNK
     Dates: start: 20130528, end: 20130812
  5. CEFALEXIN [Concomitant]
     Dosage: UNK UKN, UNK
     Dates: start: 20130624, end: 20130701
  6. CO-BENELDOPA [Concomitant]
     Dosage: UNK UKN, UNK
     Dates: start: 20130514, end: 20130611
  7. IBANDRONIC ACID [Concomitant]
     Dosage: UNK UKN, UNK
     Dates: start: 20130522, end: 20130822
  8. MADOPAR [Concomitant]
     Dosage: UNK UKN, UNK
     Dates: start: 20130509
  9. OMEPRAZOLE [Concomitant]
     Dosage: UNK UKN, UNK
     Dates: start: 20130522
  10. PARACETAMOL [Concomitant]
     Dosage: UNK UKN, UNK
     Dates: start: 20130509, end: 20130603
  11. PARACETAMOL [Concomitant]
     Dosage: UNK UKN, UNK
     Dates: start: 20130715, end: 20130727

REACTIONS (5)
  - Dry throat [Unknown]
  - Flushing [Recovering/Resolving]
  - Dysgeusia [Unknown]
  - Diarrhoea [Recovered/Resolved]
  - Dry mouth [Recovering/Resolving]
